FAERS Safety Report 9613423 (Version 2)
Quarter: 2013Q4

REPORT INFORMATION
  Report Type: Spontaneous
  Country: US (occurrence: US)
  Receive Date: 20131010
  Receipt Date: 20131122
  Transmission Date: 20140711
  Serious: Yes (Other)
  Sender: FDA-Public Use
  Company Number: US-PFIZER INC-2013286739

PATIENT
  Age: 4 Month
  Sex: Male

DRUGS (1)
  1. BENEFIX [Suspect]
     Indication: HAEMOPHILIA
     Dosage: UNK
     Dates: start: 2013

REACTIONS (2)
  - Poor quality drug administered [Unknown]
  - Drug half-life reduced [Unknown]
